FAERS Safety Report 5397784-5 (Version None)
Quarter: 2007Q3

REPORT INFORMATION
  Report Type: 
  Country: None (occurrence: None)
  Receive Date: 20070726
  Receipt Date: 20070725
  Transmission Date: 20080115
  Serious: Yes (Hospitalization)
  Sender: FDA-Public Use
  Company Number: B0480609A

PATIENT
  Age: 81 Year
  Sex: Female

DRUGS (3)
  1. AMOXICILLIN TRIHYDRATE [Suspect]
     Indication: INFECTION
     Route: 048
     Dates: start: 20070527, end: 20070528
  2. TAVANIC [Suspect]
     Indication: INFECTION
     Route: 048
     Dates: start: 20070529, end: 20070601
  3. ANTIVITAMINS K [Concomitant]
     Indication: VENOUS THROMBOSIS
     Route: 065

REACTIONS (6)
  - ACUTE GENERALISED EXANTHEMATOUS PUSTULOSIS [None]
  - GENERALISED ERYTHEMA [None]
  - INFLAMMATION [None]
  - LEUKOCYTOSIS [None]
  - PYREXIA [None]
  - RASH PUSTULAR [None]
